FAERS Safety Report 7509683-0 (Version None)
Quarter: 2011Q2

REPORT INFORMATION
  Report Type: 
  Country: None (occurrence: None)
  Receive Date: 20110527
  Receipt Date: 20110523
  Transmission Date: 20111010
  Serious: Yes (Death, Hospitalization, Other)
  Sender: FDA-Public Use
  Company Number: DE-ABBOTT-11P-062-0709697-00

PATIENT
  Sex: Female

DRUGS (4)
  1. HUMIRA [Suspect]
     Dates: start: 20110101, end: 20110201
  2. LOW DOSE GLUCOCORTICOID [Concomitant]
     Indication: RHEUMATOID ARTHRITIS
  3. HUMIRA [Suspect]
     Indication: RHEUMATOID ARTHRITIS
     Dosage: 40MG PREFILLED SYRINGE, EVERY EVERY 8TH DAY
     Dates: start: 20100916
  4. HUMIRA [Suspect]
     Indication: RHEUMATOID ARTHRITIS
     Dates: end: 20110401

REACTIONS (9)
  - DEHYDRATION [None]
  - SEPSIS [None]
  - CEREBROVASCULAR ACCIDENT [None]
  - RENAL FAILURE [None]
  - ENDOCARDITIS [None]
  - CARDIAC INFECTION [None]
  - CACHEXIA [None]
  - NASOPHARYNGITIS [None]
  - SUPERINFECTION BACTERIAL [None]
